FAERS Safety Report 4874881-1 (Version None)
Quarter: 2006Q1

REPORT INFORMATION
  Report Type: 
  Country: None (occurrence: None)
  Receive Date: 20060109
  Receipt Date: 20051221
  Transmission Date: 20060701
  Serious: Yes (Other)
  Sender: FDA-Public Use
  Company Number: 2005AP06552

PATIENT
  Age: 17705 Day
  Sex: Female

DRUGS (6)
  1. NORTEN [Suspect]
     Indication: HYPERTENSION
     Dosage: }6 MONTHS PRIOR TO STUDY START
     Route: 048
     Dates: end: 20051213
  2. TESAGLITAZAR [Suspect]
     Indication: DIABETES MELLITUS NON-INSULIN-DEPENDENT
     Route: 048
     Dates: start: 20051014, end: 20051213
  3. METFORMIN [Suspect]
     Indication: DIABETES MELLITUS NON-INSULIN-DEPENDENT
     Route: 048
     Dates: end: 20051213
  4. NEOBLOC [Concomitant]
     Indication: HYPERTENSION
     Dosage: }6 MONTHS PRIOR TO STUDY START
     Route: 048
  5. ASPIRIN [Concomitant]
     Indication: DYSLIPIDAEMIA
     Dosage: }6 MONTHS PRIOR TO STUDY START
     Route: 048
  6. VIDASTAT [Concomitant]
     Indication: DYSLIPIDAEMIA
     Dosage: }6 MONTHS PRIOR TO STUDY START
     Route: 048
     Dates: end: 20051213

REACTIONS (1)
  - FACE OEDEMA [None]
